FAERS Safety Report 23191574 (Version 1)
Quarter: 2023Q4

REPORT INFORMATION
  Report Type: Spontaneous
  Country: IE (occurrence: IE)
  Receive Date: 20231116
  Receipt Date: 20231116
  Transmission Date: 20240110
  Serious: Yes (Death, Hospitalization, Other)
  Sender: FDA-Public Use
  Company Number: None

PATIENT
  Age: 73 Year
  Sex: Male

DRUGS (2)
  1. APIXABAN [Suspect]
     Active Substance: APIXABAN
     Indication: Atrial fibrillation
  2. IBUPROFEN [Concomitant]
     Active Substance: IBUPROFEN
     Indication: Product used for unknown indication

REACTIONS (7)
  - Haemorrhagic stroke [Fatal]
  - Brain stem haemorrhage [Fatal]
  - Subdural haemorrhage [Fatal]
  - Dysarthria [Fatal]
  - Facial paresis [Fatal]
  - Facial paralysis [Fatal]
  - Fall [Fatal]

NARRATIVE: CASE EVENT DATE: 20230101
